FAERS Safety Report 21265825 (Version 1)
Quarter: 2022Q3

REPORT INFORMATION
  Report Type: Spontaneous
  Country: US (occurrence: None)
  Receive Date: 20220828
  Receipt Date: 20220828
  Transmission Date: 20221026
  Serious: Yes (Life-Threatening, Other)
  Sender: FDA-Public Use
  Company Number: None

PATIENT
  Age: 29 Year
  Sex: Female
  Weight: 72 kg

DRUGS (1)
  1. DEXTROAMPHET SACCHARAT, AMPHET ASPARTATE, DEXTROAMPHET SULFATE AND AMP [Suspect]
     Active Substance: AMPHETAMINE ASPARTATE\AMPHETAMINE SULFATE\DEXTROAMPHETAMINE SACCHARATE\DEXTROAMPHETAMINE SULFATE
     Indication: Attention deficit hyperactivity disorder
     Dosage: OTHER QUANTITY : 1 TABLET(S);?
     Route: 048

REACTIONS (14)
  - Product quality issue [None]
  - Drug ineffective [None]
  - Fatigue [None]
  - Anxiety [None]
  - Depression [None]
  - Migraine [None]
  - Tremor [None]
  - Hypoaesthesia [None]
  - Hypoaesthesia [None]
  - Dizziness [None]
  - Agitation [None]
  - Feeling abnormal [None]
  - Treatment noncompliance [None]
  - Manufacturing materials issue [None]
